FAERS Safety Report 6893007-6 (Version None)
Quarter: 2010Q3

REPORT INFORMATION
  Report Type: 
  Country: None (occurrence: None)
  Receive Date: 20100731
  Receipt Date: 20081230
  Transmission Date: 20110219
  Serious: Yes (Death)
  Sender: FDA-Public Use
  Company Number: US-PFIZER INC-2008159624

PATIENT
  Sex: Female
  Weight: 48.073 kg

DRUGS (10)
  1. CAMPTOSAR [Suspect]
     Indication: BREAST CANCER METASTATIC
     Dosage: 150 MG, WEEKLY THEN LATER 2 WEEKS ON, ONE WEEK OFF
     Route: 042
     Dates: start: 20080725
  2. NEURONTIN [Concomitant]
  3. OXYCONTIN [Concomitant]
  4. MEGACE [Concomitant]
  5. LEXAPRO [Concomitant]
  6. PREDNISONE [Concomitant]
  7. SALT TABLETS [Concomitant]
  8. PROTONIX [Concomitant]
  9. POTASSIUM CHLORIDE [Concomitant]
  10. BIAXIN [Concomitant]

REACTIONS (2)
  - BREAST CANCER METASTATIC [None]
  - DISEASE PROGRESSION [None]
